FAERS Safety Report 7658790-0 (Version None)
Quarter: 2011Q3

REPORT INFORMATION
  Report Type: 
  Country: None (occurrence: None)
  Receive Date: 20110805
  Receipt Date: 20110805
  Transmission Date: 20111222
  Serious: Yes (Other)
  Sender: FDA-Public Use
  Company Number: None

PATIENT
  Age: 84 Year
  Sex: Female
  Weight: 90.718 kg

DRUGS (2)
  1. BROMDAY [Concomitant]
     Dosage: TWO DROPS
     Route: 047
     Dates: start: 20110702, end: 20110706
  2. BROMDAY [Suspect]
     Indication: DRY EYE
     Dosage: TWO DROPS
     Route: 047
     Dates: start: 20110601, end: 20110701

REACTIONS (3)
  - PRODUCT QUALITY ISSUE [None]
  - EYE IRRITATION [None]
  - EYE PRURITUS [None]
